FAERS Safety Report 7050267-9 (Version None)
Quarter: 2010Q4

REPORT INFORMATION
  Report Type: 
  Country: None (occurrence: None)
  Receive Date: 20101013
  Receipt Date: 20100929
  Transmission Date: 20110411
  Serious: Yes (Disabling)
  Sender: FDA-Public Use
  Company Number: 2010AP002103

PATIENT
  Age: 48 Year
  Sex: Male

DRUGS (4)
  1. TOPIRAMATE [Suspect]
     Indication: HEADACHE
     Dosage: 50 MG; BID; PO
     Route: 048
     Dates: start: 20100707, end: 20100905
  2. ESOMEPRAZOLE (ESOMEPRAZOLE) [Concomitant]
  3. RANITIDINE [Concomitant]
  4. TRAMADOL HCL [Concomitant]

REACTIONS (1)
  - PAIN [None]
